FAERS Safety Report 9732285 (Version 2)
Quarter: 2014Q1

REPORT INFORMATION
  Report Type: Spontaneous
  Country: DE (occurrence: DE)
  Receive Date: 20131205
  Receipt Date: 20140113
  Transmission Date: 20141002
  Serious: Yes (Other)
  Sender: FDA-Public Use
  Company Number: DE-JNJFOC-20131200076

PATIENT
  Age: 49 Year
  Sex: Female
  Weight: 65 kg

DRUGS (4)
  1. SIMPONI [Suspect]
     Indication: PSORIATIC ARTHROPATHY
     Route: 058
     Dates: start: 20110510, end: 201312
  2. SIMPONI [Suspect]
     Indication: PSORIATIC ARTHROPATHY
     Route: 058
  3. SIMPONI [Suspect]
     Indication: PSORIASIS
     Route: 058
     Dates: start: 20110510, end: 201312
  4. SIMPONI [Suspect]
     Indication: PSORIASIS
     Route: 058

REACTIONS (1)
  - Uterine leiomyoma [Recovered/Resolved]
